FAERS Safety Report 23792031 (Version 1)
Quarter: 2024Q2

REPORT INFORMATION
  Report Type: Other
  Country: US (occurrence: US)
  Receive Date: 20240429
  Receipt Date: 20240429
  Transmission Date: 20240716
  Serious: Yes (Hospitalization, Other)
  Sender: FDA-Public Use
  Company Number: US-INTERCEPT-PM2024000821

PATIENT
  Sex: Female

DRUGS (21)
  1. OCALIVA [Suspect]
     Active Substance: OBETICHOLIC ACID
     Indication: Primary biliary cholangitis
     Dosage: 5 MILLIGRAM, QD
     Route: 048
     Dates: start: 20200911, end: 2020
  2. OCALIVA [Suspect]
     Active Substance: OBETICHOLIC ACID
     Dosage: 10 MILLIGRAM, QD
     Route: 048
     Dates: start: 2020
  3. URSODIOL [Concomitant]
     Active Substance: URSODIOL
  4. SENNA LAXATIVE [Concomitant]
     Active Substance: SENNOSIDES
  5. LIDOCAINE [Concomitant]
     Active Substance: LIDOCAINE
  6. BUSPIRONE HCL [Concomitant]
     Active Substance: BUSPIRONE HYDROCHLORIDE
  7. TIZANIDINE HYDROCHLORIDE [Concomitant]
     Active Substance: TIZANIDINE HYDROCHLORIDE
  8. CLOPIDOGREL [Concomitant]
     Active Substance: CLOPIDOGREL BISULFATE
  9. VITAMIN D3 [Concomitant]
     Active Substance: CHOLECALCIFEROL
  10. OMEPRAZOLE [Concomitant]
     Active Substance: OMEPRAZOLE
  11. MIRTAZAPINE [Concomitant]
     Active Substance: MIRTAZAPINE
  12. LISINOPRIL [Concomitant]
     Active Substance: LISINOPRIL
  13. CITALOPRAM [Concomitant]
     Active Substance: CITALOPRAM\CITALOPRAM HYDROBROMIDE
  14. LEVETIRACETAM [Concomitant]
     Active Substance: LEVETIRACETAM
  15. AMLODIPINE BESYLATE [Concomitant]
     Active Substance: AMLODIPINE BESYLATE
  16. METOPROLOL SUCCINATE [Concomitant]
     Active Substance: METOPROLOL SUCCINATE
  17. LORATADINE [Concomitant]
     Active Substance: LORATADINE
  18. VITAMINS [Concomitant]
     Active Substance: VITAMINS
  19. MELOXICAM [Concomitant]
     Active Substance: MELOXICAM
  20. ATORVASTATIN CALCIUM [Concomitant]
     Active Substance: ATORVASTATIN CALCIUM
  21. HYDROXYZINE PAMOATE [Concomitant]
     Active Substance: HYDROXYZINE PAMOATE

REACTIONS (12)
  - Nephrolithiasis [Unknown]
  - Fall [Recovered/Resolved]
  - Sternal fracture [Unknown]
  - Spinal fracture [Not Recovered/Not Resolved]
  - Head injury [Unknown]
  - Back pain [Not Recovered/Not Resolved]
  - Renal pain [Not Recovered/Not Resolved]
  - Diarrhoea [Not Recovered/Not Resolved]
  - Constipation [Not Recovered/Not Resolved]
  - Arthralgia [Not Recovered/Not Resolved]
  - Pruritus [Not Recovered/Not Resolved]
  - Fatigue [Not Recovered/Not Resolved]

NARRATIVE: CASE EVENT DATE: 20230101
